FAERS Safety Report 14615313 (Version 1)
Quarter: 2018Q1

REPORT INFORMATION
  Report Type: Report from Study
  Country: CA (occurrence: CA)
  Receive Date: 20180308
  Receipt Date: 20180308
  Transmission Date: 20180509
  Serious: Yes (Hospitalization, Other)
  Sender: FDA-Public Use
  Company Number: CA-TAKEDA-2016TUS014666

PATIENT
  Age: 51 Year
  Sex: Female

DRUGS (3)
  1. VEDOLIZUMAB [Suspect]
     Active Substance: VEDOLIZUMAB
     Dosage: 300 MG, Q4WEEKS
     Route: 042
     Dates: start: 20160815
  2. REMICADE [Concomitant]
     Active Substance: INFLIXIMAB
     Dosage: UNK, Q8WEEKS
  3. VEDOLIZUMAB [Suspect]
     Active Substance: VEDOLIZUMAB
     Indication: CROHN^S DISEASE
     Dosage: 300 MG, UNK
     Route: 042
     Dates: start: 20160415, end: 20160720

REACTIONS (4)
  - Jaundice [Unknown]
  - Hepatic infection [Unknown]
  - Liver transplant [Unknown]
  - Off label use [Unknown]

NARRATIVE: CASE EVENT DATE: 20160815
